FAERS Safety Report 9550173 (Version 1)
Quarter: 2013Q3

REPORT INFORMATION
  Report Type: Report from Study
  Country: BR (occurrence: BR)
  Receive Date: 20130924
  Receipt Date: 20130924
  Transmission Date: 20140515
  Serious: Yes (Other)
  Sender: FDA-Public Use
  Company Number: PHHY2013BR106107

PATIENT
  Sex: Male

DRUGS (2)
  1. EXELON [Suspect]
     Indication: CEREBRAL ATROPHY
     Dosage: UNK UKN, BID (IN THE MORNING AND AT NIGHT)
     Route: 048
  2. EXELON [Suspect]
     Dosage: UNK UKN, UNK
     Route: 048

REACTIONS (5)
  - Diverticulitis [Recovering/Resolving]
  - Gastrointestinal disorder [Recovering/Resolving]
  - Cerebral atrophy [Recovering/Resolving]
  - Feeling abnormal [Recovering/Resolving]
  - Confusional state [Recovering/Resolving]
